FAERS Safety Report 5595284-0 (Version None)
Quarter: 2008Q1

REPORT INFORMATION
  Report Type: 
  Country: None (occurrence: None)
  Receive Date: 20080117
  Receipt Date: 20080111
  Transmission Date: 20080703
  Serious: Yes (Disabling)
  Sender: FDA-Public Use
  Company Number: US-MERCK-0712USA01408

PATIENT
  Age: 22 Year
  Sex: Male

DRUGS (4)
  1. STROMECTOL [Suspect]
     Indication: ACARODERMATITIS
     Route: 048
     Dates: start: 20070620, end: 20070620
  2. STROMECTOL [Suspect]
     Route: 048
     Dates: start: 20070601, end: 20070601
  3. STROMECTOL [Suspect]
     Route: 048
     Dates: start: 20070701, end: 20070701
  4. STROMECTOL [Suspect]
     Route: 048
     Dates: start: 20070701, end: 20070701

REACTIONS (2)
  - INAPPROPRIATE SCHEDULE OF DRUG ADMINISTRATION [None]
  - PLATELET COUNT DECREASED [None]
